FAERS Safety Report 9306147 (Version 3)
Quarter: 2013Q3

REPORT INFORMATION
  Report Type: Spontaneous
  Country: DE (occurrence: DE)
  Receive Date: 20130523
  Receipt Date: 20130718
  Transmission Date: 20140515
  Serious: Yes (Hospitalization)
  Sender: FDA-Public Use
  Company Number: DE-JNJFOC-20130512186

PATIENT
  Age: 33 Year
  Sex: Male
  Weight: 57 kg

DRUGS (2)
  1. REMICADE [Suspect]
     Indication: CROHN^S DISEASE
     Dosage: RECEIVED APPROXIMATELY 37 INFUSIONS
     Route: 042
     Dates: start: 20071127, end: 20130313
  2. CALCIUM + D3 [Concomitant]
     Indication: OSTEOPENIA
     Dosage: CALCIUM 1 G AND VITAMIN D 800 IU
     Route: 065
     Dates: start: 200704

REACTIONS (2)
  - Hodgkin^s disease [Not Recovered/Not Resolved]
  - Sinusitis [Unknown]
